FAERS Safety Report 19993187 (Version 5)
Quarter: 2022Q4

REPORT INFORMATION
  Report Type: Other
  Country: JP (occurrence: JP)
  Receive Date: 20211026
  Receipt Date: 20221005
  Transmission Date: 20230113
  Serious: Yes (Other)
  Sender: FDA-Public Use
  Company Number: JP-CHUGAI-2021022578

PATIENT
  Age: 74 Year
  Sex: Female
  Weight: 52.3 kg

DRUGS (13)
  1. ATEZOLIZUMAB [Suspect]
     Active Substance: ATEZOLIZUMAB
     Indication: Lung adenocarcinoma
     Dosage: 1200 MILLIGRAM, ONCE/3WEEKS
     Route: 041
     Dates: start: 20210609, end: 20210630
  2. ATEZOLIZUMAB [Suspect]
     Active Substance: ATEZOLIZUMAB
     Dosage: 1200 MILLIGRAM, ONCE/3WEEKS
     Route: 041
     Dates: start: 20210727, end: 20210817
  3. ATEZOLIZUMAB [Suspect]
     Active Substance: ATEZOLIZUMAB
     Dosage: MOST RECENT DOSE RECEIVED ON 09/DEC/2021?1200 MILLIGRAM, ONCE/4WEEKS
     Route: 041
     Dates: start: 20210915, end: 20211209
  4. BEVACIZUMAB [Suspect]
     Active Substance: BEVACIZUMAB
     Indication: Lung adenocarcinoma
     Dosage: 780 MILLIGRAM, SINGLE
     Route: 041
     Dates: start: 20210609, end: 20210609
  5. BEVACIZUMAB [Suspect]
     Active Substance: BEVACIZUMAB
     Dosage: 760 MILLIGRAM, ONCE/3WEEKS
     Route: 041
     Dates: start: 20210727, end: 20210817
  6. BEVACIZUMAB [Suspect]
     Active Substance: BEVACIZUMAB
     Dosage: 700 MILLIGRAM, SINGLE
     Route: 041
     Dates: start: 20210630, end: 20210630
  7. BEVACIZUMAB [Suspect]
     Active Substance: BEVACIZUMAB
     Dosage: MOST RECENT DOSE RECEIVED ON 09/DEC/2021?760 MILLIGRAM, ONCE/4WEEKS
     Route: 041
     Dates: start: 20210916, end: 20211209
  8. PACLITAXEL [Suspect]
     Active Substance: PACLITAXEL
     Indication: Lung adenocarcinoma
     Dosage: 270 MILLIGRAM
     Route: 041
     Dates: start: 20210609, end: 20210609
  9. PACLITAXEL [Suspect]
     Active Substance: PACLITAXEL
     Dosage: 270 MILLIGRAM
     Route: 041
     Dates: start: 20210630, end: 20210630
  10. PACLITAXEL [Suspect]
     Active Substance: PACLITAXEL
     Dosage: 150 MILLIGRAM, ONCE/3WEEKS?MOST RECENT DOSE RECEIVED ON 17/AUG/2021
     Route: 041
     Dates: start: 20210727
  11. CARBOPLATIN [Concomitant]
     Active Substance: CARBOPLATIN
     Indication: Lung adenocarcinoma
     Dosage: 420 MILLIGRAM, SINGLE
     Route: 041
     Dates: start: 20210609, end: 20210609
  12. CARBOPLATIN [Concomitant]
     Active Substance: CARBOPLATIN
     Dosage: 340 MILLIGRAM, SINGLE
     Route: 041
     Dates: start: 20210630, end: 20210630
  13. CARBOPLATIN [Concomitant]
     Active Substance: CARBOPLATIN
     Dosage: 340 MILLIGRAM, ONCE/3WEEKS
     Route: 041
     Dates: start: 20210727, end: 20210817

REACTIONS (6)
  - Neutrophil count decreased [Recovered/Resolved]
  - White blood cell count decreased [Recovered/Resolved]
  - Decreased appetite [Recovered/Resolved]
  - Platelet count decreased [Recovered/Resolved]
  - Neuropathy peripheral [Not Recovered/Not Resolved]
  - Arthralgia [Recovered/Resolved]

NARRATIVE: CASE EVENT DATE: 20210612
